FAERS Safety Report 4913601-9 (Version None)
Quarter: 2006Q1

REPORT INFORMATION
  Report Type: 
  Country: None (occurrence: None)
  Receive Date: 20060214
  Receipt Date: 20060214
  Transmission Date: 20060701
  Serious: Yes (Life-Threatening)
  Sender: FDA-Public Use
  Company Number: None

PATIENT
  Sex: Female

DRUGS (8)
  1. OXALIPLATIN [Suspect]
     Indication: COLON CANCER
     Dosage: 105 MG OVER 15 MINUTES IV [1 TIME]
     Route: 042
  2. LEUCOVORIN [Concomitant]
  3. MSIR [Concomitant]
  4. MS CONTIN [Concomitant]
  5. DULCOLAX [Concomitant]
  6. PREDNISONE [Concomitant]
  7. DEXAMETHASONE SODIUM PHOSPHATE [Concomitant]
  8. KYTRIL [Concomitant]

REACTIONS (7)
  - BRADYCARDIA [None]
  - EYE ROLLING [None]
  - FEELING HOT [None]
  - INFUSION RELATED REACTION [None]
  - LOSS OF CONSCIOUSNESS [None]
  - RESPIRATORY ARREST [None]
  - URINARY INCONTINENCE [None]
